FAERS Safety Report 7764632-5 (Version None)
Quarter: 2011Q3

REPORT INFORMATION
  Report Type: 
  Country: None (occurrence: None)
  Receive Date: 20110921
  Receipt Date: 20110910
  Transmission Date: 20111222
  Serious: Yes (Other)
  Sender: FDA-Public Use
  Company Number: PHHY2011AU81521

PATIENT

DRUGS (1)
  1. TASIGNA [Suspect]

REACTIONS (2)
  - PERIPHERAL VASCULAR DISORDER [None]
  - MYOCARDIAL ISCHAEMIA [None]
